FAERS Safety Report 12320319 (Version 1)
Quarter: 2016Q2

REPORT INFORMATION
  Report Type: Spontaneous
  Country: IT (occurrence: IT)
  Receive Date: 20160429
  Receipt Date: 20160429
  Transmission Date: 20160815
  Serious: Yes (Other)
  Sender: FDA-Public Use
  Company Number: IT-IMPAX LABORATORIES, INC-2016-IPXL-00449

PATIENT
  Age: 44 Year
  Sex: Male

DRUGS (2)
  1. METHADONE HYDROCHLORIDE. [Suspect]
     Active Substance: METHADONE HYDROCHLORIDE
     Dosage: UNK
     Route: 042
  2. METHADONE HYDROCHLORIDE. [Suspect]
     Active Substance: METHADONE HYDROCHLORIDE
     Indication: DRUG DEPENDENCE
     Dosage: 330 MG, DAILY
     Route: 065

REACTIONS (5)
  - Incorrect route of drug administration [Recovered/Resolved]
  - Drug abuse [Recovered/Resolved]
  - Injection site abscess [Unknown]
  - Intentional product misuse [Recovered/Resolved]
  - Pneumoconiosis [Recovering/Resolving]
